FAERS Safety Report 5239543-X (Version None)
Quarter: 2007Q1

REPORT INFORMATION
  Report Type: 
  Country: None (occurrence: None)
  Receive Date: 20070209
  Receipt Date: 20070202
  Transmission Date: 20070707
  Serious: No
  Sender: FDA-Public Use
  Company Number: 2007-153959-NL

PATIENT
  Age: 39 Year
  Sex: Male

DRUGS (3)
  1. MIRTAZAPINE [Suspect]
     Indication: DEPRESSION
     Dosage: ORAL
     Route: 048
     Dates: start: 20070113
  2. CARBMAZEPINE [Concomitant]
  3. SALBUTAMOL [Concomitant]

REACTIONS (7)
  - EOSINOPHIL COUNT INCREASED [None]
  - FACE OEDEMA [None]
  - FLUID RETENTION [None]
  - IMPAIRED DRIVING ABILITY [None]
  - JOINT SWELLING [None]
  - OEDEMA [None]
  - WEIGHT INCREASED [None]
